FAERS Safety Report 6311365-8 (Version None)
Quarter: 2009Q3

REPORT INFORMATION
  Report Type: 
  Country: None (occurrence: None)
  Receive Date: 20090817
  Receipt Date: 20090807
  Transmission Date: 20100115
  Serious: Yes (Hospitalization)
  Sender: FDA-Public Use
  Company Number: FR-ELI_LILLY_AND_COMPANY-FR200908001405

PATIENT
  Age: 73 Year
  Sex: Male

DRUGS (1)
  1. ALIMTA [Suspect]
     Indication: LUNG ADENOCARCINOMA
     Dosage: 900 MG, UNKNOWN
     Route: 042
     Dates: start: 20090612, end: 20090612

REACTIONS (8)
  - ANAEMIA [None]
  - EPISTAXIS [None]
  - FATIGUE [None]
  - LEUKOPENIA [None]
  - PRURITUS [None]
  - RASH MACULO-PAPULAR [None]
  - THROMBOCYTOPENIA [None]
  - VASCULITIS [None]
